FAERS Safety Report 15067975 (Version 4)
Quarter: 2018Q3

REPORT INFORMATION
  Report Type: Spontaneous
  Country: US (occurrence: US)
  Receive Date: 20180626
  Receipt Date: 20180810
  Transmission Date: 20181010
  Serious: No
  Sender: FDA-Public Use
  Company Number: US-PFIZER INC-2018258105

PATIENT
  Age: 65 Year
  Sex: Female

DRUGS (4)
  1. CHANTIX [Suspect]
     Active Substance: VARENICLINE TARTRATE
     Indication: SMOKING CESSATION THERAPY
     Dosage: 0.5 MG, UNK (STARTER PACK/FOR THE FIRST 7 DAYS)
  2. CHANTIX [Suspect]
     Active Substance: VARENICLINE TARTRATE
     Dosage: UNK
  3. CHANTIX [Suspect]
     Active Substance: VARENICLINE TARTRATE
     Dosage: UNK
  4. CHANTIX [Suspect]
     Active Substance: VARENICLINE TARTRATE
     Dosage: 1 MG, UNK (8TH DAY)

REACTIONS (11)
  - Fatigue [Unknown]
  - Asthenia [Unknown]
  - Agitation [Unknown]
  - Weight increased [Unknown]
  - Poor quality sleep [Unknown]
  - Nightmare [Unknown]
  - Drug hypersensitivity [Unknown]
  - Anxiety [Unknown]
  - Feeling abnormal [Unknown]
  - Overdose [Unknown]
  - Insomnia [Unknown]
